FAERS Safety Report 5277999-7 (Version None)
Quarter: 2007Q1

REPORT INFORMATION
  Report Type: 
  Country: None (occurrence: None)
  Receive Date: 20070321
  Receipt Date: 20070305
  Transmission Date: 20070707
  Serious: Yes (Other)
  Sender: FDA-Public Use
  Company Number: 2512

PATIENT
  Age: 79 Year
  Sex: Male

DRUGS (1)
  1. TARGRETIN [Suspect]
     Indication: MYCOSIS FUNGOIDES
     Dosage: 150 MG DAILY PO
     Route: 048
     Dates: start: 20060723

REACTIONS (3)
  - HEARING IMPAIRED [None]
  - LYMPHOCYTOSIS [None]
  - THROMBOCYTOPENIA [None]
